FAERS Safety Report 24786663 (Version 1)
Quarter: 2024Q4

REPORT INFORMATION
  Report Type: Report from Study
  Country: US (occurrence: US)
  Receive Date: 20241230
  Receipt Date: 20241230
  Transmission Date: 20250114
  Serious: Yes (Hospitalization)
  Sender: JOHNSON AND JOHNSON
  Company Number: US-JNJFOC-20241269966

PATIENT
  Age: 16 Year

DRUGS (2)
  1. REMICADE [Suspect]
     Active Substance: INFLIXIMAB
     Indication: Crohn^s disease
     Route: 041
  2. VEDOLIZUMAB [Concomitant]
     Active Substance: VEDOLIZUMAB

REACTIONS (1)
  - Histoplasmosis disseminated [Unknown]
